FAERS Safety Report 11338019 (Version 1)
Quarter: 2015Q3

REPORT INFORMATION
  Report Type: Spontaneous
  Country: US (occurrence: US)
  Receive Date: 20150803
  Receipt Date: 20150803
  Transmission Date: 20151125
  Serious: No
  Sender: FDA-Public Use
  Company Number: US-ELI_LILLY_AND_COMPANY-US201005003709

PATIENT
  Age: 33 Year
  Sex: Male

DRUGS (3)
  1. ZYPREXA [Suspect]
     Active Substance: OLANZAPINE
     Indication: BIPOLAR I DISORDER
     Dosage: 30 MG, DAILY (1/D)
  2. ABILIFY [Concomitant]
     Active Substance: ARIPIPRAZOLE
  3. ZYPREXA [Suspect]
     Active Substance: OLANZAPINE
     Dosage: 15 MG, DAILY (1/D)

REACTIONS (4)
  - Diabetes mellitus [Recovering/Resolving]
  - Prescribed overdose [Recovered/Resolved]
  - Weight increased [Recovering/Resolving]
  - Hypertension [Recovering/Resolving]
